FAERS Safety Report 18502824 (Version 1)
Quarter: 2020Q4

REPORT INFORMATION
  Report Type: Spontaneous
  Country: US (occurrence: US)
  Receive Date: 20201113
  Receipt Date: 20201113
  Transmission Date: 20210114
  Serious: No
  Sender: FDA-Public Use
  Company Number: US-PERRIGO-20US008697

PATIENT
  Age: 69 Year
  Sex: Male
  Weight: 68.93 kg

DRUGS (6)
  1. MESALAZINE [Suspect]
     Active Substance: MESALAMINE
     Indication: DIVERTICULUM
  2. MESALAZINE [Suspect]
     Active Substance: MESALAMINE
     Indication: COLITIS
  3. MULTIVITAMINS, PLAIN [Concomitant]
     Active Substance: VITAMINS
     Indication: SUPPLEMENTATION THERAPY
     Dosage: UNK
     Route: 065
  4. ESOMEPRAZOLE MAGNESIUM. [Concomitant]
     Active Substance: ESOMEPRAZOLE MAGNESIUM
     Indication: GASTROOESOPHAGEAL REFLUX DISEASE
     Dosage: UNK
     Route: 065
     Dates: start: 2016
  5. LEVOTHYROXINE. [Concomitant]
     Active Substance: LEVOTHYROXINE
     Indication: HYPOTHYROIDISM
     Dosage: UNK
     Route: 065
     Dates: start: 2016
  6. MESALAZINE [Suspect]
     Active Substance: MESALAMINE
     Indication: HAEMORRHOIDS
     Dosage: 4 G, SINGLE
     Route: 054
     Dates: start: 20200613, end: 20200613

REACTIONS (3)
  - Mucous stools [Recovered/Resolved]
  - Anal incontinence [Recovered/Resolved]
  - Off label use [Recovered/Resolved]

NARRATIVE: CASE EVENT DATE: 20200613
